FAERS Safety Report 7643943-8 (Version None)
Quarter: 2011Q3

REPORT INFORMATION
  Report Type: 
  Country: None (occurrence: None)
  Receive Date: 20110729
  Receipt Date: 20101013
  Transmission Date: 20111222
  Serious: No
  Sender: FDA-Public Use
  Company Number: US-GLAXOSMITHKLINE-A0886422A

PATIENT
  Age: 56 Year
  Sex: Female

DRUGS (4)
  1. LISINOPRIL [Concomitant]
  2. AMITRIPTYLINE HCL [Concomitant]
  3. DYAZIDE [Suspect]
     Indication: HYPERTENSION
     Dosage: 37.5MG PER DAY
     Route: 048
     Dates: start: 20100601
  4. METFORMIN HCL [Concomitant]

REACTIONS (1)
  - MUSCLE SPASMS [None]
